FAERS Safety Report 8972075 (Version 3)
Quarter: 2018Q2

REPORT INFORMATION
  Report Type: Spontaneous
  Country: US (occurrence: US)
  Receive Date: 20121219
  Receipt Date: 20180615
  Transmission Date: 20180711
  Serious: Yes (Hospitalization, Other)
  Sender: FDA-Public Use
  Company Number: US-009507513-1212USA006804

PATIENT
  Sex: Female
  Weight: 67.12 kg

DRUGS (9)
  1. FOSAMAX [Suspect]
     Active Substance: ALENDRONATE SODIUM
     Indication: OSTEOPOROSIS
     Dosage: 70 MG, QW
     Route: 048
     Dates: start: 199802, end: 200605
  2. FOSAMAX [Suspect]
     Active Substance: ALENDRONATE SODIUM
     Dosage: 70 MG, QW
     Route: 048
     Dates: start: 200806, end: 200811
  3. FOSAMAX [Suspect]
     Active Substance: ALENDRONATE SODIUM
     Indication: OSTEOPOROSIS
     Dosage: 10 MG, DAILY
     Route: 048
     Dates: start: 199802, end: 200609
  4. FOSAMAX PLUS D [Suspect]
     Active Substance: ALENDRONATE SODIUM\CHOLECALCIFEROL
     Indication: OSTEOPOROSIS
     Dosage: 70 MG, WEEKLY
     Route: 048
     Dates: start: 20060911, end: 20080507
  5. FOSAMAX PLUS D [Suspect]
     Active Substance: ALENDRONATE SODIUM\CHOLECALCIFEROL
     Indication: OSTEOPOROSIS
     Dosage: 70 MG/5600 IU, QW
     Route: 048
     Dates: start: 20070913
  6. FOSAMAX [Suspect]
     Active Substance: ALENDRONATE SODIUM
     Dosage: 70 MG, Q WEDNESDAYS
     Route: 048
     Dates: start: 200901, end: 20090928
  7. FOSAMAX PLUS D [Suspect]
     Active Substance: ALENDRONATE SODIUM\CHOLECALCIFEROL
     Indication: OSTEOPOROSIS
     Dosage: 70 MG/2800 IU, QW
     Route: 048
     Dates: start: 20060606
  8. ALENDRONATE SODIUM. [Suspect]
     Active Substance: ALENDRONATE SODIUM
     Indication: OSTEOPOROSIS
     Dosage: 70 MG, UNK
     Route: 048
     Dates: start: 20080523, end: 200810
  9. ALENDRONATE SODIUM. [Suspect]
     Active Substance: ALENDRONATE SODIUM
     Indication: OSTEOPOROSIS
     Dosage: 70 MG, UNK
     Route: 065
     Dates: start: 20081028, end: 200909

REACTIONS (31)
  - Haematochezia [Unknown]
  - Occult blood positive [Unknown]
  - Atrioventricular block first degree [Unknown]
  - Fracture delayed union [Unknown]
  - Swelling [Unknown]
  - Arthroscopy [Unknown]
  - Fall [Unknown]
  - Asthenia [Unknown]
  - Fall [Unknown]
  - Elbow operation [Unknown]
  - Hypertension [Unknown]
  - Occult blood positive [Unknown]
  - Osteopenia [Unknown]
  - Cervical dysplasia [Unknown]
  - Blood cholesterol increased [Unknown]
  - Left ventricular hypertrophy [Unknown]
  - Polyneuropathy [Unknown]
  - Myocardial ischaemia [Unknown]
  - Osteoarthritis [Unknown]
  - Low turnover osteopathy [Unknown]
  - Intramedullary rod insertion [Unknown]
  - Rib fracture [Unknown]
  - Femur fracture [Unknown]
  - Blood urea increased [Unknown]
  - Muscle spasms [Unknown]
  - Upper limb fracture [Unknown]
  - Hysterectomy [Unknown]
  - Low density lipoprotein increased [Unknown]
  - Fatigue [Unknown]
  - Fracture [Unknown]
  - Blood glucose increased [Unknown]

NARRATIVE: CASE EVENT DATE: 19980309
